FAERS Safety Report 13660617 (Version 4)
Quarter: 2017Q3

REPORT INFORMATION
  Report Type: Spontaneous
  Country: US (occurrence: US)
  Receive Date: 20170616
  Receipt Date: 20170810
  Transmission Date: 20171127
  Serious: Yes (Other)
  Sender: FDA-Public Use
  Company Number: US-PFIZER INC-2017261523

PATIENT
  Age: 81 Year
  Sex: Male

DRUGS (6)
  1. LOVASTATIN. [Concomitant]
     Active Substance: LOVASTATIN
     Dosage: UNK
  2. NORVASC [Suspect]
     Active Substance: AMLODIPINE BESYLATE
     Indication: BLOOD PRESSURE INCREASED
     Dosage: 5 MG, 1X/DAY
  3. VIACTIV [Concomitant]
     Active Substance: CALCIUM\VITAMIN D\VITAMIN K5
     Dosage: UNK
  4. ASPIRIN. [Concomitant]
     Active Substance: ASPIRIN
     Dosage: 81 MG, UNK
  5. XTANDI [Suspect]
     Active Substance: ENZALUTAMIDE
     Indication: PROSTATE CANCER
     Dosage: 160 MG, 1X/DAY (4 TABS-40 MG ALL AT ONCE EVERY DAY) [BEDTIME [HS]]
     Route: 048
     Dates: start: 20161116
  6. HYDROXYUREA. [Concomitant]
     Active Substance: HYDROXYUREA
     Dosage: 500 MG, 2X/WEEK ON MON-FRIDAY

REACTIONS (5)
  - Loss of consciousness [Unknown]
  - Fatigue [Not Recovered/Not Resolved]
  - Dizziness [Not Recovered/Not Resolved]
  - Neoplasm progression [Unknown]
  - Tremor [Not Recovered/Not Resolved]

NARRATIVE: CASE EVENT DATE: 2015
